FAERS Safety Report 6502558-5 (Version None)
Quarter: 2009Q4

REPORT INFORMATION
  Report Type: 
  Country: None (occurrence: None)
  Receive Date: 20091217
  Receipt Date: 20091208
  Transmission Date: 20100525
  Serious: No
  Sender: FDA-Public Use
  Company Number: US-B.I. PHARMACEUTICALS,INC./RIDGEFIELD-2009-BP-14136BP

PATIENT
  Age: 64 Year
  Sex: Female

DRUGS (5)
  1. CATAPRES-TTS-1 [Suspect]
     Indication: HYPERTENSION
     Dosage: 0.2 MG
     Route: 061
     Dates: start: 20070101
  2. DIOVAN [Concomitant]
     Indication: HYPERTENSION
  3. LEVOTHYROXINE SODIUM [Concomitant]
     Indication: HYPOTHYROIDISM
  4. FUROSEMIDE [Concomitant]
     Indication: HYPERTENSION
  5. POTASSIUM CHLORIDE [Concomitant]

REACTIONS (4)
  - APPLICATION SITE PAIN [None]
  - APPLICATION SITE PRURITUS [None]
  - HYPOTENSION [None]
  - LABORATORY TEST ABNORMAL [None]
